FAERS Safety Report 17012599 (Version 1)
Quarter: 2019Q4

REPORT INFORMATION
  Report Type: Spontaneous
  Country: US (occurrence: US)
  Receive Date: 20191109
  Receipt Date: 20191109
  Transmission Date: 20200122
  Serious: No
  Sender: FDA-Public Use
  Company Number: US-GLAXOSMITHKLINE-US2019197498

PATIENT
  Sex: Female

DRUGS (2)
  1. FLOVENT [Suspect]
     Active Substance: FLUTICASONE PROPIONATE
     Indication: ASTHMA
     Dosage: 1 PUFF(S), BID
     Route: 065
  2. FLOVENT [Suspect]
     Active Substance: FLUTICASONE PROPIONATE
     Dosage: 1 PUFF(S), 1D
     Route: 065

REACTIONS (4)
  - Oral candidiasis [Unknown]
  - Mouth ulceration [Unknown]
  - Wrong technique in device usage process [Unknown]
  - Oropharyngeal pain [Unknown]
